FAERS Safety Report 10922422 (Version 1)
Quarter: 2015Q1

REPORT INFORMATION
  Report Type: Spontaneous
  Country: ES (occurrence: None)
  Receive Date: 20150312
  Receipt Date: 20150312
  Transmission Date: 20150721
  Serious: Yes (Death, Other)
  Sender: FDA-Public Use
  Company Number: 2269773

PATIENT
  Age: 81 Year
  Sex: Male
  Weight: 88 kg

DRUGS (7)
  1. CETUXIMAB [Suspect]
     Active Substance: CETUXIMAB
     Indication: LIVER DISORDER
  2. AVODART [Concomitant]
     Active Substance: DUTASTERIDE
  3. OXALIPLATIN. [Suspect]
     Active Substance: OXALIPLATIN
     Indication: RECTAL ADENOCARCINOMA
     Dosage: NOT OTHERWISE SPECIFIED
     Route: 042
     Dates: start: 201106, end: 20111025
  4. RALTITREXED DISODIUM [Suspect]
     Active Substance: RALTITREXED
     Indication: RECTAL ADENOCARCINOMA
     Dosage: NOT OTHERWISE SPECIFIED
     Route: 042
     Dates: start: 201106, end: 20111025
  5. OMNIC [Concomitant]
     Active Substance: TAMSULOSIN HYDROCHLORIDE
  6. ADIRO [Concomitant]
     Active Substance: ASPIRIN
  7. MINITRAN /00003201/ [Concomitant]

REACTIONS (7)
  - Hepatic failure [None]
  - Renal impairment [None]
  - Hepatic encephalopathy [None]
  - Diarrhoea [None]
  - Herpes zoster [None]
  - Neuropathy peripheral [None]
  - Therapeutic response decreased [None]
